FAERS Safety Report 9311908 (Version 1)
Quarter: 2013Q1

REPORT INFORMATION
  Report Type: Spontaneous
  Country: US (occurrence: None)
  Receive Date: 20130211
  Receipt Date: 20130211
  Transmission Date: 20140127
  Serious: Yes (Hospitalization)
  Sender: FDA-Public Use
  Company Number: 1006-282

PATIENT
  Age: 28 Year
  Sex: Female
  Weight: 60 kg

DRUGS (7)
  1. RILONACEPT [Suspect]
     Indication: FAMILIAL MEDITERRANEAN FEVER
     Route: 058
     Dates: start: 20090814, end: 20100622
  2. COLCHICINE (COLCHICINE) [Concomitant]
  3. DILAUDID (HYDROMORPHONE HYDROCHLORIDE) INJECTION [Concomitant]
  4. XANAX (ALPRAZOLAM) [Concomitant]
  5. VICODIN (VICODIN) [Concomitant]
  6. DOXYCYCLINE (DOXYCYCLINE) [Concomitant]
  7. TRAZODONE (TRAZODONE) [Concomitant]

REACTIONS (1)
  - Lobar pneumonia [None]
